FAERS Safety Report 4975145-8 (Version None)
Quarter: 2006Q2

REPORT INFORMATION
  Report Type: 
  Country: None (occurrence: None)
  Receive Date: 20060411
  Receipt Date: 20060328
  Transmission Date: 20061013
  Serious: Yes (Hospitalization)
  Sender: FDA-Public Use
  Company Number: 2006P1000162

PATIENT
  Age: 62 Year
  Sex: Male
  Weight: 80 kg

DRUGS (3)
  1. RETEPLASE (RETEPLASE) [Suspect]
     Indication: ACUTE MYOCARDIAL INFARCTION
     Dosage: 5 IU X1 IVB
     Route: 040
     Dates: start: 20050520, end: 20050520
  2. ABCIXIMAM (ABCIXIMAB) [Suspect]
     Indication: ACUTE MYOCARDIAL INFARCTION
     Dosage: 10 ML X1 IVB ; QH IV
     Route: 040
     Dates: start: 20050520, end: 20050520
  3. HEPARIN [Concomitant]

REACTIONS (3)
  - ANAEMIA [None]
  - INJECTION SITE HAEMORRHAGE [None]
  - POST PROCEDURAL COMPLICATION [None]
